FAERS Safety Report 7257531-9 (Version None)
Quarter: 2011Q1

REPORT INFORMATION
  Report Type: 
  Country: None (occurrence: None)
  Receive Date: 20110129
  Receipt Date: 20100513
  Transmission Date: 20110831
  Serious: No
  Sender: FDA-Public Use
  Company Number: US-ABBOTT-10P-163-0636350-00

PATIENT
  Sex: Male
  Weight: 86.26 kg

DRUGS (3)
  1. PREDNISONE [Concomitant]
     Indication: PRODUCT USED FOR UNKNOWN INDICATION
     Dates: start: 20090501
  2. HUMIRA [Suspect]
  3. HUMIRA [Suspect]
     Indication: COLITIS ULCERATIVE
     Dates: start: 20070402

REACTIONS (8)
  - MENISCUS LESION [None]
  - PAIN [None]
  - COLITIS ULCERATIVE [None]
  - TENDON PAIN [None]
  - HERPES ZOSTER [None]
  - ROAD TRAFFIC ACCIDENT [None]
  - INCREASED TENDENCY TO BRUISE [None]
  - TENDON RUPTURE [None]
